FAERS Safety Report 21794636 (Version 2)
Quarter: 2023Q1

REPORT INFORMATION
  Report Type: Spontaneous
  Country: BR (occurrence: None)
  Receive Date: 20221229
  Receipt Date: 20230216
  Transmission Date: 20230418
  Serious: Yes (Hospitalization)
  Sender: FDA-Public Use
  Company Number: BR-Merck Healthcare KGaA-9374902

PATIENT
  Sex: Male

DRUGS (1)
  1. EUTHYROX [Suspect]
     Active Substance: LEVOTHYROXINE SODIUM
     Indication: Hypothyroidism
     Dosage: THERAPY START DATE: APPROXIMATELY 20 YEARS
     Route: 048

REACTIONS (5)
  - Coronary artery surgery [Unknown]
  - Arrhythmia [Unknown]
  - Haemorrhoids [Not Recovered/Not Resolved]
  - Skin fissures [Not Recovered/Not Resolved]
  - Constipation [Not Recovered/Not Resolved]
